FAERS Safety Report 6147623-X (Version None)
Quarter: 2009Q2

REPORT INFORMATION
  Report Type: 
  Country: None (occurrence: None)
  Receive Date: 20090402
  Receipt Date: 20081204
  Transmission Date: 20091009
  Serious: Yes (Other)
  Sender: FDA-Public Use
  Company Number: US-WYE-H07113008

PATIENT
  Age: 81 Year
  Sex: Male
  Weight: 87.17 kg

DRUGS (4)
  1. ALAVERT [Suspect]
     Indication: NASAL CONGESTION
     Dosage: 1 TABLET, 1X PER 1 DAY, ORAL
     Route: 048
     Dates: start: 20081101, end: 20080101
  2. LIPITOR [Concomitant]
  3. NORVASC [Concomitant]
  4. ALLOPURINOL [Concomitant]

REACTIONS (1)
  - DYSURIA [None]
